FAERS Safety Report 22826402 (Version 3)
Quarter: 2023Q4

REPORT INFORMATION
  Report Type: Report from Study
  Country: US (occurrence: US)
  Receive Date: 20230816
  Receipt Date: 20231204
  Transmission Date: 20240109
  Serious: Yes (Other)
  Sender: FDA-Public Use
  Company Number: US-TAKEDA-2023TUS017617

PATIENT
  Age: 61 Year
  Sex: Male
  Weight: 58.95 kg

DRUGS (15)
  1. TEDUGLUTIDE [Suspect]
     Active Substance: TEDUGLUTIDE
     Indication: Short-bowel syndrome
     Dosage: 3.2 MILLIGRAM, QD
     Route: 058
  2. TEDUGLUTIDE [Suspect]
     Active Substance: TEDUGLUTIDE
     Indication: Short-bowel syndrome
     Dosage: 3.2 MILLIGRAM, QD
     Route: 058
  3. TEDUGLUTIDE [Suspect]
     Active Substance: TEDUGLUTIDE
     Indication: Short-bowel syndrome
     Dosage: 3.2 MILLIGRAM, QD
     Route: 058
  4. TEDUGLUTIDE [Suspect]
     Active Substance: TEDUGLUTIDE
     Indication: Short-bowel syndrome
     Dosage: 3.2 MILLIGRAM, QD
     Route: 058
  5. TEDUGLUTIDE [Suspect]
     Active Substance: TEDUGLUTIDE
     Dosage: 0.32 MILLILITER, QD
     Route: 058
  6. TEDUGLUTIDE [Suspect]
     Active Substance: TEDUGLUTIDE
     Dosage: 0.32 MILLILITER, QD
     Route: 058
  7. TEDUGLUTIDE [Suspect]
     Active Substance: TEDUGLUTIDE
     Dosage: 0.32 MILLILITER, QD
     Route: 058
  8. TEDUGLUTIDE [Suspect]
     Active Substance: TEDUGLUTIDE
     Dosage: 0.32 MILLILITER, QD
     Route: 058
  9. HERBALS\TURMERIC [Concomitant]
     Active Substance: HERBALS\TURMERIC
     Dosage: 500 MILLIGRAM
     Route: 065
  10. CALCIUM\VITAMIN D [Concomitant]
     Active Substance: CALCIUM\VITAMIN D
     Dosage: UNK
     Route: 065
  11. LOPERAMIDE [Concomitant]
     Active Substance: LOPERAMIDE
     Dosage: 2 MILLIGRAM
     Route: 065
  12. CREON [Concomitant]
     Active Substance: PANCRELIPASE AMYLASE\PANCRELIPASE LIPASE\PANCRELIPASE PROTEASE
     Dosage: UNK
     Route: 065
  13. FLUDROCORTISONE ACETATE [Concomitant]
     Active Substance: FLUDROCORTISONE ACETATE
     Dosage: UNK
     Route: 065
  14. VITAMIN D [Concomitant]
     Active Substance: VITAMIN D NOS
     Dosage: 10 MICROGRAM
     Route: 065
  15. STELARA [Concomitant]
     Active Substance: USTEKINUMAB
     Dosage: UNK
     Route: 065

REACTIONS (4)
  - Surgery [Unknown]
  - Weight decreased [Unknown]
  - Weight gain poor [Unknown]
  - Product use issue [Unknown]

NARRATIVE: CASE EVENT DATE: 20231121
